FAERS Safety Report 8891151 (Version 1)
Quarter: 2012Q4

REPORT INFORMATION
  Report Type: 
  Country: SE (occurrence: SE)
  Receive Date: 20121107
  Receipt Date: 20121107
  Transmission Date: 20130627
  Serious: Yes (Hospitalization)
  Sender: FDA-Public Use
  Company Number: SE-PFIZER INC-2012271394

PATIENT
  Age: 73 Year
  Sex: Female
  Weight: 70.75 kg

DRUGS (6)
  1. GENOTROPIN [Suspect]
     Dosage: 0.2 mg, 1x/day,7 injections/week
     Route: 058
     Dates: start: 20040420
  2. CALCIUM CARBONATE [Concomitant]
     Indication: OSTEOPOROSIS
     Dosage: UNK
     Dates: start: 19940101
  3. SERTRALINE [Concomitant]
     Indication: DEPRESSION
     Dosage: UNK
     Dates: start: 19990115
  4. INOLAXOL [Concomitant]
     Indication: CONSTIPATION
     Dosage: UNK
     Dates: start: 20021010
  5. HYDROCORTISONE [Concomitant]
     Indication: ACTH DECREASED
     Dosage: UNK
     Dates: start: 20030303
  6. METFORMIN [Concomitant]
     Indication: DIABETES MELLITUS
     Dosage: UNK
     Dates: start: 20021010

REACTIONS (1)
  - Incontinence [Unknown]
